FAERS Safety Report 14975292 (Version 5)
Quarter: 2019Q1

REPORT INFORMATION
  Report Type: Report from Study
  Country: US (occurrence: US)
  Receive Date: 20180605
  Receipt Date: 20190122
  Transmission Date: 20190417
  Serious: No
  Sender: FDA-Public Use
  Company Number: PHEH2018US021411

PATIENT
  Sex: Female

DRUGS (2)
  1. COSENTYX [Suspect]
     Active Substance: SECUKINUMAB
     Indication: PSORIASIS
     Dosage: UNK
     Route: 058
     Dates: start: 20180616
  2. COSENTYX [Suspect]
     Active Substance: SECUKINUMAB
     Indication: PSORIASIS
     Dosage: 300 MG, QMO
     Route: 058
     Dates: start: 201805

REACTIONS (9)
  - Injection site haemorrhage [Unknown]
  - Drug ineffective [Unknown]
  - Ill-defined disorder [Unknown]
  - Pruritus [Not Recovered/Not Resolved]
  - Skin plaque [Not Recovered/Not Resolved]
  - Skin fissures [Not Recovered/Not Resolved]
  - Malaise [Unknown]
  - Injection site bruising [Unknown]
  - Psoriasis [Unknown]
